FAERS Safety Report 16957118 (Version 2)
Quarter: 2021Q4

REPORT INFORMATION
  Report Type: Spontaneous
  Country: JP (occurrence: JP)
  Receive Date: 20191024
  Receipt Date: 20211028
  Transmission Date: 20220303
  Serious: Yes (Other)
  Sender: FDA-Public Use
  Company Number: JP-BAYER-2019-186462

PATIENT
  Age: 70 Year
  Sex: Male

DRUGS (1)
  1. NEXAVAR [Suspect]
     Active Substance: SORAFENIB
     Indication: Hepatocellular carcinoma
     Dosage: 400 MG, QD
     Route: 048
     Dates: start: 20191008, end: 20191014

REACTIONS (2)
  - Hyperammonaemia [Recovering/Resolving]
  - Off label use [None]

NARRATIVE: CASE EVENT DATE: 20191008
